FAERS Safety Report 5898920-4 (Version None)
Quarter: 2008Q3

REPORT INFORMATION
  Report Type: 
  Country: None (occurrence: None)
  Receive Date: 20080925
  Receipt Date: 20080916
  Transmission Date: 20090109
  Serious: Yes (Life-Threatening, Hospitalization)
  Sender: FDA-Public Use
  Company Number: JP-SANOFI-SYNTHELABO-A01200809193

PATIENT
  Sex: Male
  Weight: 79.5 kg

DRUGS (6)
  1. HUMACART N [Concomitant]
     Indication: DRUG USE FOR UNKNOWN INDICATION
     Dosage: 34-0-14
     Route: 065
  2. BASEN [Concomitant]
     Indication: DRUG USE FOR UNKNOWN INDICATION
     Route: 048
     Dates: end: 20080609
  3. EPADEL [Concomitant]
     Indication: DRUG USE FOR UNKNOWN INDICATION
     Route: 065
     Dates: start: 20080514
  4. LASIX [Concomitant]
     Indication: DRUG USE FOR UNKNOWN INDICATION
     Route: 048
     Dates: start: 20080514
  5. PLAVIX [Suspect]
     Indication: CEREBRAL INFARCTION
     Route: 048
     Dates: start: 20080509, end: 20080702
  6. KINEDAK [Concomitant]
     Indication: DRUG USE FOR UNKNOWN INDICATION
     Route: 048
     Dates: start: 20080514, end: 20080609

REACTIONS (1)
  - ATRIOVENTRICULAR BLOCK COMPLETE [None]
